FAERS Safety Report 9302183 (Version 1)
Quarter: 2013Q2

REPORT INFORMATION
  Report Type: Spontaneous
  Country: GB (occurrence: GB)
  Receive Date: 20130522
  Receipt Date: 20130522
  Transmission Date: 20140414
  Serious: Yes (Other)
  Sender: FDA-Public Use
  Company Number: GB-B.I. PHARMACEUTICALS,INC./RIDGEFIELD-2013-UK-01135UK

PATIENT
  Age: 84 Year
  Sex: Female
  Weight: 56 kg

DRUGS (10)
  1. PRADAXA [Suspect]
     Indication: ATRIAL FIBRILLATION
     Dosage: 220 MG
     Route: 048
     Dates: start: 20130314, end: 20130429
  2. AMIODARONE [Concomitant]
  3. BISOPROLOL [Concomitant]
  4. DIGOXIN [Concomitant]
  5. DOMPERIDONE [Concomitant]
  6. FUROSEMIDE [Concomitant]
  7. ISMN [Concomitant]
  8. LANSOPRAZOLE [Concomitant]
  9. PERINDOPRIL [Concomitant]
  10. SIMVASTATIN [Concomitant]

REACTIONS (3)
  - Dyspepsia [Unknown]
  - Nausea [Unknown]
  - Weight decreased [Unknown]
